FAERS Safety Report 16909908 (Version 2)
Quarter: 2019Q4

REPORT INFORMATION
  Report Type: Spontaneous
  Country: DE (occurrence: DE)
  Receive Date: 20191011
  Receipt Date: 20191018
  Transmission Date: 20200122
  Serious: Yes (Hospitalization, Other)
  Sender: FDA-Public Use
  Company Number: DE-JNJFOC-20190727992

PATIENT
  Age: 76 Year
  Sex: Male
  Weight: 67 kg

DRUGS (12)
  1. MARCUMAR [Concomitant]
     Active Substance: PHENPROCOUMON
  2. PANTOZOL [Concomitant]
     Active Substance: PANTOPRAZOLE SODIUM
  3. ZYTIGA [Suspect]
     Active Substance: ABIRATERONE ACETATE
     Indication: PRODUCT USED FOR UNKNOWN INDICATION
     Route: 048
     Dates: start: 201611, end: 201904
  4. METOHEXAL [Concomitant]
     Active Substance: METOPROLOL
  5. TORASEMIDE [Concomitant]
     Active Substance: TORSEMIDE
  6. PREDNISOLONE. [Concomitant]
     Active Substance: PREDNISOLONE
  7. SIMVAHEXAL [Concomitant]
     Active Substance: SIMVASTATIN
  8. AXURA [Concomitant]
     Active Substance: MEMANTINE HYDROCHLORIDE
  9. TOREM                              /01036501/ [Concomitant]
     Active Substance: TORSEMIDE
  10. DELIX [Concomitant]
  11. SIMVASTATIN. [Concomitant]
     Active Substance: SIMVASTATIN
  12. ENALAPRIL [Concomitant]
     Active Substance: ENALAPRIL

REACTIONS (3)
  - Prostatic specific antigen increased [Unknown]
  - Interstitial lung disease [Recovering/Resolving]
  - Drug ineffective [Unknown]

NARRATIVE: CASE EVENT DATE: 201904
